FAERS Safety Report 10566077 (Version 1)
Quarter: 2014Q4

REPORT INFORMATION
  Report Type: Spontaneous
  Country: US (occurrence: US)
  Receive Date: 20141105
  Receipt Date: 20141105
  Transmission Date: 20150529
  Serious: No
  Sender: FDA-Public Use
  Company Number: US-PFIZER INC-2014303869

PATIENT
  Sex: Male

DRUGS (3)
  1. NEOSPORIN /00121001/ [Suspect]
     Active Substance: NEOMYCIN SULFATE\POLYMYXIN B SULFATE
  2. NEOSPORIN /00121001/ [Suspect]
     Active Substance: NEOMYCIN SULFATE\POLYMYXIN B SULFATE
  3. NEOSPORIN [Suspect]
     Active Substance: BACITRACIN ZINC\NEOMYCIN SULFATE\POLYMYXIN B SULFATE
     Dosage: UNK

REACTIONS (1)
  - Drug hypersensitivity [Unknown]
